FAERS Safety Report 5047647-X (Version None)
Quarter: 2006Q3

REPORT INFORMATION
  Report Type: 
  Country: None (occurrence: None)
  Receive Date: 20060705
  Receipt Date: 20060705
  Transmission Date: 20061208
  Serious: Yes (Death, Hospitalization)
  Sender: FDA-Public Use
  Company Number: None

PATIENT
  Sex: Female
  Weight: 68.4 kg

DRUGS (11)
  1. SYMBYAX [Suspect]
     Indication: BIPOLAR DISORDER
     Dosage: 6 MG OOLANZAPINE/25 MG FLUOXETINE  DAILY PO
     Route: 048
     Dates: start: 20060515, end: 20060605
  2. CEFEPIME [Concomitant]
  3. LEVOFLOXACIN [Concomitant]
  4. FLUCONAZOLE [Concomitant]
  5. VANCOMCYIN [Concomitant]
  6. ESOMEPRAZOLE [Concomitant]
  7. PROPOFOL [Concomitant]
  8. NOREPINEPHRINE BITARTRATE [Concomitant]
  9. NEUPOGEN [Concomitant]
  10. FERRIC SODIUM GLUCONATE [Concomitant]
  11. EPOETIN ALPHA [Concomitant]

REACTIONS (13)
  - BACTERIA BLOOD IDENTIFIED [None]
  - BONE MARROW FAILURE [None]
  - CONFUSIONAL STATE [None]
  - CONTUSION [None]
  - EPSTEIN-BARR VIRUS TEST POSITIVE [None]
  - FEBRILE NEUTROPENIA [None]
  - IDIOSYNCRATIC DRUG REACTION [None]
  - INFECTION [None]
  - LEUKOPENIA [None]
  - MENTAL STATUS CHANGES [None]
  - SPUTUM CULTURE POSITIVE [None]
  - STAPHYLOCOCCAL INFECTION [None]
  - THERAPY NON-RESPONDER [None]
